FAERS Safety Report 5383292-4 (Version None)
Quarter: 2007Q3

REPORT INFORMATION
  Report Type: 
  Country: None (occurrence: None)
  Receive Date: 20070705
  Receipt Date: 20070622
  Transmission Date: 20080115
  Serious: Yes (Other)
  Sender: FDA-Public Use
  Company Number: FEI2007-1110

PATIENT
  Age: 26 Year
  Sex: Female

DRUGS (1)
  1. COPPER T [Suspect]
     Indication: CONTRACEPTION
     Dosage: INTRA-UTERINE
     Route: 015
     Dates: start: 19970101, end: 20030101

REACTIONS (6)
  - CALCULUS BLADDER [None]
  - DEVICE BREAKAGE [None]
  - IUCD COMPLICATION [None]
  - IUD MIGRATION [None]
  - URINARY TRACT INFECTION [None]
  - UTERINE PERFORATION [None]
